FAERS Safety Report 6649479-5 (Version None)
Quarter: 2010Q1

REPORT INFORMATION
  Report Type: 
  Country: None (occurrence: None)
  Receive Date: 20100324
  Receipt Date: 20100324
  Transmission Date: 20100710
  Serious: Yes (Life-Threatening, Hospitalization)
  Sender: FDA-Public Use
  Company Number: None

PATIENT
  Age: 75 Year
  Sex: Female
  Weight: 65.7716 kg

DRUGS (5)
  1. PLAVIX [Suspect]
     Indication: ANTICOAGULANT THERAPY
     Dosage: 75 MG DAILY PO
     Route: 048
     Dates: start: 20080524, end: 20100317
  2. PLAVIX [Suspect]
     Indication: CORONARY ARTERIAL STENT INSERTION
     Dosage: 75 MG DAILY PO
     Route: 048
     Dates: start: 20080524, end: 20100317
  3. ATENOLOL [Concomitant]
  4. ZOCOR [Concomitant]
  5. ASPIRIN [Concomitant]

REACTIONS (12)
  - ACUTE LEUKAEMIA [None]
  - BLOOD IRON DECREASED [None]
  - CHRONIC LEUKAEMIA [None]
  - FULL BLOOD COUNT DECREASED [None]
  - HAEMATOCRIT DECREASED [None]
  - HAEMOGLOBIN DECREASED [None]
  - LYMPHOMA [None]
  - MUSCLE FATIGUE [None]
  - MYELODYSPLASTIC SYNDROME [None]
  - PLATELET COUNT DECREASED [None]
  - RED BLOOD CELL COUNT DECREASED [None]
  - WHITE BLOOD CELL COUNT DECREASED [None]
